FAERS Safety Report 11693530 (Version 2)
Quarter: 2015Q4

REPORT INFORMATION
  Report Type: Report from Study
  Country: AU (occurrence: AU)
  Receive Date: 20151103
  Receipt Date: 20151231
  Transmission Date: 20160304
  Serious: Yes (Death, Other)
  Sender: FDA-Public Use
  Company Number: PHHO2015AU015536

PATIENT
  Age: 70 Year
  Sex: Male

DRUGS (44)
  1. GABAPENTIN. [Concomitant]
     Active Substance: GABAPENTIN
     Indication: CHEST PAIN
     Dosage: 100 BID
     Route: 048
     Dates: start: 20120808, end: 20130101
  2. AMLODIPINE [Concomitant]
     Active Substance: AMLODIPINE BESYLATE
     Indication: HYPERTENSION
     Dosage: 10 QD
     Route: 048
     Dates: start: 20141201, end: 20150427
  3. OMEPRAZOLE. [Concomitant]
     Active Substance: OMEPRAZOLE
     Indication: DYSPEPSIA
     Dosage: 20 QD
     Route: 048
     Dates: start: 20121002, end: 20121006
  4. MOVICOL [Concomitant]
     Active Substance: POLYETHYLENE GLYCOL 3350\POTASSIUM CHLORIDE\SODIUM BICARBONATE\SODIUM CHLORIDE
     Indication: CONSTIPATION PROPHYLAXIS
     Dosage: 1 QD
     Route: 048
     Dates: start: 20120501
  5. GABAPENTIN. [Concomitant]
     Active Substance: GABAPENTIN
     Dosage: 100 QD
     Route: 048
     Dates: start: 20130601
  6. INNER HEALTH PLUS [Concomitant]
     Indication: PRODUCT USED FOR UNKNOWN INDICATION
     Dosage: UNK
     Route: 048
  7. FLUDROCORTISONE [Concomitant]
     Active Substance: FLUDROCORTISONE
     Dosage: 150 QD
     Route: 048
     Dates: start: 20150427
  8. FRUSEMIDE [Concomitant]
     Active Substance: FUROSEMIDE
     Dosage: 40 QD
     Route: 048
     Dates: start: 20130413, end: 20130430
  9. FRUSEMIDE [Concomitant]
     Active Substance: FUROSEMIDE
     Dosage: 20 4 TIMES PER WEEK
     Route: 048
     Dates: start: 20140114, end: 20140311
  10. SPIRONOLACTONE. [Concomitant]
     Active Substance: SPIRONOLACTONE
     Dosage: 25 2 TIMES PER WEEK
     Route: 048
     Dates: start: 20140114, end: 20140311
  11. WARFARIN [Concomitant]
     Active Substance: WARFARIN
     Indication: DEEP VEIN THROMBOSIS
     Dosage: QD
     Route: 048
     Dates: start: 20130320
  12. BURINEX [Concomitant]
     Active Substance: BUMETANIDE
     Indication: OEDEMA PERIPHERAL
     Dosage: 1 TID
     Route: 048
     Dates: start: 20140601, end: 20140601
  13. BURINEX [Concomitant]
     Active Substance: BUMETANIDE
     Dosage: 2 QD
     Route: 048
     Dates: start: 20150427
  14. FLUDROCORTISONE [Concomitant]
     Active Substance: FLUDROCORTISONE
     Indication: ADRENAL INSUFFICIENCY
     Dosage: 100 QD
     Route: 048
     Dates: start: 20091201, end: 20140601
  15. CLEXANE [Concomitant]
     Active Substance: ENOXAPARIN SODIUM
     Indication: DEEP VEIN THROMBOSIS
     Dosage: 60 QD
     Route: 058
     Dates: start: 20120801, end: 20130319
  16. SPIRONOLACTONE. [Concomitant]
     Active Substance: SPIRONOLACTONE
     Dosage: 25 4 TIMES PER WEEK
     Route: 048
     Dates: start: 20131121, end: 20140113
  17. CALCITROL [Concomitant]
     Active Substance: CALCITRIOL
     Dosage: 0.25 EVERY OTHER DAY
     Route: 048
     Dates: start: 20140601, end: 20150427
  18. OXYCONTIN [Concomitant]
     Active Substance: OXYCODONE HYDROCHLORIDE
     Dosage: 10 BID
     Route: 048
     Dates: start: 20121010
  19. BURINEX [Concomitant]
     Active Substance: BUMETANIDE
     Dosage: 1 QD
     Route: 048
     Dates: start: 20140723, end: 20150427
  20. FRUSEMIDE [Concomitant]
     Active Substance: FUROSEMIDE
     Indication: OEDEMA PERIPHERAL
     Dosage: 20 QD
     Route: 048
     Dates: start: 20120912, end: 20130412
  21. FRUSEMIDE [Concomitant]
     Active Substance: FUROSEMIDE
     Dosage: 20 QD
     Route: 048
     Dates: start: 20130501, end: 20130507
  22. SLOW-K [Concomitant]
     Active Substance: POTASSIUM CHLORIDE
     Indication: HYPOKALAEMIC SYNDROME
     Dosage: 1 BID
     Route: 048
     Dates: start: 20130109, end: 20130507
  23. SPIRONOLACTONE. [Concomitant]
     Active Substance: SPIRONOLACTONE
     Indication: OEDEMA PERIPHERAL
     Dosage: 25 QD
     Route: 048
     Dates: start: 20130412, end: 20130430
  24. KEFLEX [Concomitant]
     Active Substance: CEPHALEXIN
     Indication: URINARY TRACT INFECTION
     Dosage: UNK
     Route: 048
     Dates: start: 20140217, end: 20140223
  25. KEFLEX [Concomitant]
     Active Substance: CEPHALEXIN
     Indication: SKIN ULCER
     Dosage: UNK
     Route: 048
     Dates: start: 20140801, end: 20140801
  26. GABAPENTIN. [Concomitant]
     Active Substance: GABAPENTIN
     Dosage: 100 BID
     Route: 048
     Dates: start: 20130301, end: 20130601
  27. MINAX [Concomitant]
     Active Substance: METAMIZOLE
     Indication: HYPERTENSION
     Dosage: 25 BID
     Route: 048
     Dates: start: 20150427
  28. FLUDROCORTISONE [Concomitant]
     Active Substance: FLUDROCORTISONE
     Dosage: 100 QD
     Route: 048
     Dates: start: 20140601, end: 20150427
  29. FRUSEMIDE [Concomitant]
     Active Substance: FUROSEMIDE
     Dosage: PRN
     Route: 048
     Dates: start: 20140312, end: 20140601
  30. SLOW-K [Concomitant]
     Active Substance: POTASSIUM CHLORIDE
     Dosage: 1 BID
     Route: 048
     Dates: start: 20130614, end: 20130809
  31. DENOSUMAB [Concomitant]
     Active Substance: DENOSUMAB
     Indication: OSTEOPOROSIS
     Dosage: 60
     Route: 058
     Dates: start: 20140217
  32. BURINEX [Concomitant]
     Active Substance: BUMETANIDE
     Dosage: 1 BID
     Route: 048
     Dates: start: 20140601, end: 20140723
  33. FRUSEMIDE [Concomitant]
     Active Substance: FUROSEMIDE
     Dosage: 20 4 TIMES PER WEEK
     Route: 048
     Dates: start: 20130809, end: 20131120
  34. CALCITROL [Concomitant]
     Active Substance: CALCITRIOL
     Indication: OSTEOPOROSIS
     Dosage: 0.25 QD
     Route: 048
     Dates: start: 20140217, end: 20140601
  35. RESONIUM [Concomitant]
     Active Substance: SODIUM POLYSTYRENE SULFONATE
     Indication: HYPERKALAEMIA
     Dosage: UNK
     Route: 048
     Dates: start: 20130507
  36. OXYCONTIN [Concomitant]
     Active Substance: OXYCODONE HYDROCHLORIDE
     Indication: CHEST PAIN
     Dosage: 20 BID
     Route: 048
     Dates: start: 20120501, end: 20121009
  37. GABAPENTIN. [Concomitant]
     Active Substance: GABAPENTIN
     Dosage: 100 TID
     Route: 048
     Dates: start: 20130101, end: 20130301
  38. GASTRO-STOP [Concomitant]
     Active Substance: LOPERAMIDE
     Indication: DIARRHOEA
     Dosage: 1 PRN
     Route: 048
     Dates: start: 20131201
  39. FRUSEMIDE [Concomitant]
     Active Substance: FUROSEMIDE
     Dosage: 20 2 TIMES PER WEEK
     Route: 048
     Dates: start: 20130618, end: 20130809
  40. SPIRONOLACTONE. [Concomitant]
     Active Substance: SPIRONOLACTONE
     Dosage: 25 3 TIMES PER WEEK
     Route: 048
     Dates: start: 20130809, end: 20131120
  41. SPIRONOLACTONE. [Concomitant]
     Active Substance: SPIRONOLACTONE
     Dosage: 0.5 QD
     Route: 048
     Dates: start: 20140312, end: 20140324
  42. PREDNISOLONE. [Suspect]
     Active Substance: PREDNISOLONE
     Indication: ADRENAL INSUFFICIENCY
     Dosage: 7.5
     Route: 048
     Dates: start: 20120622
  43. PAZOPANIB [Suspect]
     Active Substance: PAZOPANIB
     Indication: RENAL CELL CARCINOMA
     Dosage: UNK
     Route: 048
  44. FRUSEMIDE [Concomitant]
     Active Substance: FUROSEMIDE
     Dosage: 20 5 TIMES PER WEEK
     Route: 048
     Dates: start: 20131120, end: 20140113

REACTIONS (2)
  - Septic shock [Fatal]
  - Multi-organ failure [Fatal]

NARRATIVE: CASE EVENT DATE: 20150701
